FAERS Safety Report 5414915-9 (Version None)
Quarter: 2007Q3

REPORT INFORMATION
  Report Type: 
  Country: None (occurrence: None)
  Receive Date: 20070813
  Receipt Date: 20070724
  Transmission Date: 20080115
  Serious: Yes (Hospitalization, Other)
  Sender: FDA-Public Use
  Company Number: 2007RR-08940

PATIENT
  Age: 47 Year
  Sex: Female
  Weight: 75 kg

DRUGS (1)
  1. IBUPROFEN [Suspect]
     Dosage: 400 MG, ORAL
     Route: 048
     Dates: end: 20070713

REACTIONS (4)
  - ANGIOEDEMA [None]
  - DYSPNOEA [None]
  - EYELID OEDEMA [None]
  - HYPOXIA [None]
